FAERS Safety Report 20440746 (Version 1)
Quarter: 2022Q1

REPORT INFORMATION
  Report Type: Spontaneous
  Country: CN (occurrence: CN)
  Receive Date: 20220207
  Receipt Date: 20220207
  Transmission Date: 20220423
  Serious: Yes (Life-Threatening)
  Sender: FDA-Public Use
  Company Number: CN-BAXTER-2022BAX002243

PATIENT
  Age: 57 Year
  Sex: Male
  Weight: 64 kg

DRUGS (12)
  1. CYCLOPHOSPHAMIDE [Suspect]
     Active Substance: CYCLOPHOSPHAMIDE
     Indication: Diffuse large B-cell lymphoma
     Dosage: NS 500ML + CYCLOPHOSPHAMIDE 1.2G IVGTT ONCE DAY2
     Route: 041
     Dates: start: 20220116, end: 20220116
  2. SODIUM CHLORIDE [Suspect]
     Active Substance: SODIUM CHLORIDE
     Indication: Medication dilution
     Dosage: NS 750ML + RITUXIMAB INJECTION 0.6G IV GTT ONCE D1,
  3. ETOPOSIDE [Suspect]
     Active Substance: ETOPOSIDE
     Indication: Diffuse large B-cell lymphoma
     Dosage: NS 500ML + ETOPOSIDE INJECTION 0.1G IVGTT QD DAY 2 TO DAY 4
     Route: 041
     Dates: start: 20220116, end: 20220118
  4. SODIUM CHLORIDE [Suspect]
     Active Substance: SODIUM CHLORIDE
     Indication: Medication dilution
     Dosage: NS 40ML + VINDESINE SULFATE FOR INJECTION 4 MG IV ONCE DAYV2
     Route: 042
     Dates: start: 20220116, end: 20220116
  5. SODIUM CHLORIDE [Suspect]
     Active Substance: SODIUM CHLORIDE
     Indication: Medication dilution
     Dosage: NS 250ML + DEXAMETHASONE SODIUM PHOSPHATE INJECTION 15 MG IV GTT QD DAY1 TO DAY 5
     Route: 041
     Dates: start: 20220115, end: 20220119
  6. SODIUM CHLORIDE [Suspect]
     Active Substance: SODIUM CHLORIDE
     Dosage: NS 500ML + CYCLOPHOSPHAMIDE 1.2G IVGTT ONCE DAY 2
     Route: 041
     Dates: start: 20220115, end: 20220118
  7. VINDESINE [Suspect]
     Active Substance: VINDESINE
     Indication: Diffuse large B-cell lymphoma
     Dosage: NS 40ML + VINDESINE SULFATE FOR INJECTION 4 MG IV ONCE DAY 2
     Route: 042
     Dates: start: 20220116, end: 20220116
  8. EPIRUBICIN HYDROCHLORIDE [Suspect]
     Active Substance: EPIRUBICIN HYDROCHLORIDE
     Indication: Diffuse large B-cell lymphoma
     Dosage: STERILE WATER FOR INJECTION 60ML + EPIRUBICIN HYDROCHLORIDE FOR INJECTION 110 MG IV ONCE DAY 2
     Route: 042
     Dates: start: 20220116, end: 20220116
  9. MABTHERA [Suspect]
     Active Substance: RITUXIMAB
     Indication: Diffuse large B-cell lymphoma
     Dosage: RITUXIMAB INJECTION 500 MG  DILUTED WITH NS 750ML IV GTT ONCE D1
     Route: 041
     Dates: start: 20220115, end: 20220115
  10. MABTHERA [Suspect]
     Active Substance: RITUXIMAB
     Dosage: RITUXIMAB INJECTION 500 MG  DILUTED WITH NS 750ML IV GTT ONCE D1
     Route: 041
     Dates: start: 20220115, end: 20220115
  11. WATER [Suspect]
     Active Substance: WATER
     Indication: Medication dilution
     Dosage: STERILE WATER FOR INJECTION 60ML + EPIRUBICIN HYDROCHLORIDE FOR INJECTION 110 MG IV ONCE DAY 2
     Route: 042
     Dates: start: 20220116, end: 20220116
  12. DEXAMETHASONE SODIUM PHOSPHATE [Suspect]
     Active Substance: DEXAMETHASONE SODIUM PHOSPHATE
     Indication: Diffuse large B-cell lymphoma
     Dosage: NS 250ML + DEXAMETHASONE SODIUM PHOSPHATE INJECTION 15 MG IV GTT QD DAY 1 TO DAY 5
     Route: 041
     Dates: start: 20220115, end: 20220119

REACTIONS (3)
  - White blood cell count decreased [Recovering/Resolving]
  - Neutrophil count decreased [Recovering/Resolving]
  - Platelet count decreased [Recovering/Resolving]

NARRATIVE: CASE EVENT DATE: 20220122
